FAERS Safety Report 4965092-X (Version None)
Quarter: 2006Q1

REPORT INFORMATION
  Report Type: 
  Country: None (occurrence: None)
  Receive Date: 20060130
  Receipt Date: 20051027
  Transmission Date: 20060701
  Serious: No
  Sender: FDA-Public Use
  Company Number: COT-0065_2005

PATIENT
  Age: 60 Year
  Sex: Male
  Weight: 74.3899 kg

DRUGS (14)
  1. VENTAVIS [Suspect]
     Indication: PULMONARY HYPERTENSION
     Dosage: 45 MCG QDAY IH
     Route: 055
     Dates: start: 20050503
  2. VENTAVIS [Suspect]
  3. TRACLEER [Concomitant]
  4. GLUCOSAMINE [Concomitant]
  5. COUMADIN [Concomitant]
  6. ZETIA [Concomitant]
  7. DIOVAN HCT [Concomitant]
  8. TOPROL-XL [Concomitant]
  9. DIGOXIN [Concomitant]
  10. MULTIVITAMIN [Concomitant]
  11. ASCORBIC ACID [Concomitant]
  12. OXYGEN [Concomitant]
  13. COUMADIN [Concomitant]
  14. DIOVAN [Concomitant]

REACTIONS (5)
  - ASTHENIA [None]
  - CHEST PAIN [None]
  - FLUSHING [None]
  - HEADACHE [None]
  - HYPOTENSION [None]
